FAERS Safety Report 17569058 (Version 1)
Quarter: 2020Q1

REPORT INFORMATION
  Report Type: Spontaneous
  Country: US (occurrence: US)
  Receive Date: 20200316
  Receipt Date: 20200316
  Transmission Date: 20200409
  Serious: No
  Sender: FDA-Public Use
  Company Number: None

PATIENT
  Age: 63 Year
  Sex: Female

DRUGS (1)
  1. COBICISTAT [Suspect]
     Active Substance: COBICISTAT
     Dosage: ?          OTHER DOSE:150/150/200 MG;?
     Route: 048
     Dates: start: 201912

REACTIONS (1)
  - Drug level increased [None]

NARRATIVE: CASE EVENT DATE: 20191213
